FAERS Safety Report 14787410 (Version 29)
Quarter: 2021Q3

REPORT INFORMATION
  Report Type: Spontaneous
  Country: FR (occurrence: FR)
  Receive Date: 20180421
  Receipt Date: 20210830
  Transmission Date: 20211014
  Serious: Yes (Other)
  Sender: FDA-Public Use
  Company Number: FR-AUROBINDO-AUR-APL-2018-020852

PATIENT
  Sex: Female
  Weight: 77 kg

DRUGS (56)
  1. FOLIC ACID TABLET [Suspect]
     Active Substance: FOLIC ACID
     Dosage: 5 MILLIGRAM, ONCE A DAY
     Route: 065
     Dates: start: 20170313
  2. GABAPENTIN ARROW GENERIQUES FILM?COATED TABLET [Suspect]
     Active Substance: GABAPENTIN
     Dosage: 400 MILLIGRAM, ONCE A DAY
     Route: 048
     Dates: start: 20160930
  3. METFORMIN [Suspect]
     Active Substance: METFORMIN HYDROCHLORIDE
     Indication: TYPE 2 DIABETES MELLITUS
     Dosage: 1700 MILLIGRAM, ONCE A DAY
     Route: 048
     Dates: start: 20160930, end: 20170224
  4. METFORMIN [Suspect]
     Active Substance: METFORMIN HYDROCHLORIDE
     Dosage: 850 MILLIGRAM, ONCE A DAY
     Route: 048
     Dates: start: 20170224
  5. PROPRANOLOL [Suspect]
     Active Substance: PROPRANOLOL HYDROCHLORIDE
     Dosage: 25 MILLIGRAM, ONCE A DAY
     Route: 064
     Dates: start: 20170720
  6. FORLAX [Suspect]
     Active Substance: POLYETHYLENE GLYCOL 4000
     Indication: TYPE 2 DIABETES MELLITUS
     Dosage: 1 DOSAGE FORM, ONCE A DAY
     Route: 065
     Dates: start: 20160930, end: 20170405
  7. HUMALOG [Suspect]
     Active Substance: INSULIN LISPRO
     Indication: TYPE 2 DIABETES MELLITUS
     Dosage: 21 MICROGRAM/SQ. METER, ONCE A DAY
     Route: 065
     Dates: start: 20170224, end: 20170224
  8. FOLINIC ACID [Suspect]
     Active Substance: LEUCOVORIN
     Dosage: 5 MILLIGRAM, ONCE A DAY
     Route: 065
     Dates: start: 20170313
  9. LAROXYL [Suspect]
     Active Substance: AMITRIPTYLINE HYDROCHLORIDE
     Indication: DIABETIC NEUROPATHY
     Dosage: 2 DOSAGE FORM, ONCE A DAY
     Route: 065
     Dates: start: 20160930
  10. LASIX [Suspect]
     Active Substance: FUROSEMIDE
     Dosage: 40 MILLIGRAM, UNK
     Route: 064
     Dates: start: 20170516
  11. LOXEN L P [Suspect]
     Active Substance: NICARDIPINE HYDROCHLORIDE
     Dosage: 50 MILLIGRAM
     Route: 064
     Dates: start: 20170313, end: 20170405
  12. METHYLDOPA MSD [Suspect]
     Active Substance: METHYLDOPA
     Indication: HYPERTENSION
     Dosage: 15000 MILLIGRAM, ONCE A DAY
     Route: 048
     Dates: start: 20170720
  13. GABAPENTIN ARROW GENERIQUES FILM?COATED TABLET [Suspect]
     Active Substance: GABAPENTIN
     Dosage: 80 MILLIGRAM, ONCE A DAY
     Route: 048
     Dates: start: 20160930
  14. NICARDIPINE [Suspect]
     Active Substance: NICARDIPINE
     Dosage: 100 MILLIGRAM, ONCE A DAY
     Route: 065
     Dates: start: 20180405
  15. RAMIPRIL. [Suspect]
     Active Substance: RAMIPRIL
     Indication: HYPERTENSION
     Dosage: 2.5 MILLIGRAM, ONCE A DAY (21 WEEKS 1 DAY)
     Route: 048
     Dates: start: 20160930, end: 20170224
  16. DIFFU?K [Suspect]
     Active Substance: POTASSIUM CHLORIDE
     Indication: HYPOKALAEMIA
     Dosage: 1200 MILLIGRAM, ONCE A DAY
     Route: 065
     Dates: start: 20170804
  17. INSULIN [Suspect]
     Active Substance: INSULIN NOS
     Indication: TYPE 2 DIABETES MELLITUS
     Dosage: UNK
     Route: 065
     Dates: start: 20161230, end: 20170224
  18. LARGACTIL LEIRAS [Suspect]
     Active Substance: CHLORPROMAZINE
     Indication: BIPOLAR I DISORDER
     Dosage: 0.5 DOSAGE FORM
     Route: 065
  19. LAROXYL [Suspect]
     Active Substance: AMITRIPTYLINE HYDROCHLORIDE
     Dosage: 2 DOSAGE FORM, ONCE A DAY
     Route: 065
     Dates: start: 20170914
  20. NICOPATCH [Suspect]
     Active Substance: NICOTINE
     Dosage: UNK
     Route: 065
  21. TARDYFERON [Suspect]
     Active Substance: FERROUS SULFATE
     Indication: NORMOCHROMIC NORMOCYTIC ANAEMIA
     Dosage: 1 DOSAGE FORM, ONCE A DAY(1 DF, ONCE DAILY (QD)
     Route: 065
     Dates: start: 20170313
  22. ARIPIPRAZOLE TABLETS [Suspect]
     Active Substance: ARIPIPRAZOLE
     Indication: BIPOLAR I DISORDER
     Dosage: 10 MILLIGRAM, ONCE A DAY
     Dates: start: 20160930, end: 20170224
  23. PROPRANOLOL [Suspect]
     Active Substance: PROPRANOLOL HYDROCHLORIDE
     Indication: HYPERTENSION
     Dosage: 80 MILLIGRAM DRUG INTERVAL DOSAGE OF 1 DAY
     Route: 065
     Dates: start: 20170516
  24. TRAMADOL. [Suspect]
     Active Substance: TRAMADOL
     Indication: DIABETIC NEUROPATHY
     Dosage: 100 MILLIGRAM, ONCE A DAY
     Route: 064
     Dates: start: 20160930, end: 20170306
  25. AMITRIPTYLINE HYDROCHLORIDE. [Suspect]
     Active Substance: AMITRIPTYLINE HYDROCHLORIDE
     Indication: DIABETIC NEUROPATHY
     Dosage: 2 DOSAGE FORM, ONCE A DAY
     Route: 064
     Dates: start: 20160930, end: 20170914
  26. LABETALOL [Suspect]
     Active Substance: LABETALOL\LABETALOL HYDROCHLORIDE
     Indication: HYPERTENSION
     Dosage: 1 DOSAGE FORM
     Dates: start: 20170313, end: 20180405
  27. LANTUS [Suspect]
     Active Substance: INSULIN GLARGINE
     Indication: TYPE 2 DIABETES MELLITUS
     Dosage: 20 INTERNATIONAL UNIT, ONCE A DAY
     Route: 065
     Dates: start: 20170224
  28. NICOPATCH [Suspect]
     Active Substance: NICOTINE
     Indication: EX-TOBACCO USER
     Dosage: 7 MILLIGRAM, ONCE A DAY
     Route: 065
     Dates: start: 20170224, end: 20170516
  29. TARDYFERON [Suspect]
     Active Substance: FERROUS SULFATE
     Indication: NORMOCHROMIC NORMOCYTIC ANAEMIA
     Dosage: 1 DOSAGE FORM, ONCE A DAY
     Route: 065
     Dates: start: 20170313
  30. FOLIC ACID TABLET [Suspect]
     Active Substance: FOLIC ACID
     Indication: NORMOCHROMIC NORMOCYTIC ANAEMIA
     Dosage: 5 MILLIGRAM, ONCE A DAY
     Route: 064
     Dates: start: 20170224, end: 20170313
  31. FUROSEMIDE TABLETS [Suspect]
     Active Substance: FUROSEMIDE
     Dosage: 50 MILLIGRAM
     Route: 064
  32. NICARDIPINE [Suspect]
     Active Substance: NICARDIPINE
     Indication: HYPERTENSION
     Dosage: 50 MILLIGRAM, TWO TIMES A DAY
     Route: 065
     Dates: start: 20170405
  33. NICARDIPINE [Suspect]
     Active Substance: NICARDIPINE
     Dosage: 50 MILLIGRAM, LPTWO TIMES A DAY
     Route: 065
     Dates: start: 20170313, end: 20180405
  34. AMOXICILLIN SODIUM [Suspect]
     Active Substance: AMOXICILLIN SODIUM
     Dosage: 1 GRAM, ONCE A DAY
     Route: 065
     Dates: start: 20170804, end: 20170811
  35. INSULIN LISPRO [Suspect]
     Active Substance: INSULIN LISPRO
     Indication: PRODUCT USED FOR UNKNOWN INDICATION
     Dosage: 7 MICROGRAM/MILLILITER
     Route: 064
     Dates: start: 20170224, end: 20170914
  36. LABETALOL [Suspect]
     Active Substance: LABETALOL\LABETALOL HYDROCHLORIDE
     Dosage: 80 MILLIGRAM, ONCE A DAY
     Route: 065
     Dates: start: 20170516
  37. LABETALOL [Suspect]
     Active Substance: LABETALOL\LABETALOL HYDROCHLORIDE
     Dosage: 100 MILLIGRAM, ONCE A DAY
     Dates: start: 20180405
  38. FUROSEMIDE TABLETS [Suspect]
     Active Substance: FUROSEMIDE
     Indication: HYPERTENSION
     Dosage: 40 MILLIGRAM
     Route: 065
  39. DIFFU?K [Suspect]
     Active Substance: POTASSIUM CHLORIDE
     Dosage: 3600 MILLIGRAM, ONCE A DAY
     Route: 065
     Dates: start: 20170804
  40. FORLAX [Suspect]
     Active Substance: POLYETHYLENE GLYCOL 4000
     Indication: CONSTIPATION
     Dosage: UNK
     Route: 065
  41. LANTUS [Suspect]
     Active Substance: INSULIN GLARGINE
     Dosage: 20 MILLIGRAM, ONCE A DAY
     Route: 065
     Dates: start: 20170224
  42. LEVEMIR [Suspect]
     Active Substance: INSULIN DETEMIR
     Indication: TYPE 2 DIABETES MELLITUS
     Dosage: 10 INTERNATIONAL UNIT, ONCE A DAY
     Route: 065
     Dates: start: 20160930, end: 20170224
  43. GABAPENTIN ARROW GENERIQUES FILM?COATED TABLET [Suspect]
     Active Substance: GABAPENTIN
     Indication: DIABETIC NEUROPATHY
     Dosage: 800 MILLIGRAM, ONCE A DAY
     Route: 048
     Dates: start: 20160930
  44. GLICLAZIDE [Suspect]
     Active Substance: GLICLAZIDE
     Indication: TYPE 2 DIABETES MELLITUS
     Dosage: 120 MILLIGRAM, ONCE A DAY
     Route: 064
     Dates: start: 20160930, end: 20170224
  45. TRAMADOL. [Suspect]
     Active Substance: TRAMADOL
     Dosage: 50 MILLIGRAM, ONCE A DAY
     Route: 065
     Dates: start: 20160930, end: 20170306
  46. AMOXICILLIN SODIUM [Suspect]
     Active Substance: AMOXICILLIN SODIUM
     Indication: PRODUCT USED FOR UNKNOWN INDICATION
     Dosage: 3 GRAM, ONCE A DAY
     Route: 048
     Dates: start: 20170804, end: 20170811
  47. FORLAX [Suspect]
     Active Substance: POLYETHYLENE GLYCOL 4000
     Dosage: 120 MILLIGRAM, ONCE A DAY
     Route: 065
     Dates: start: 20160930, end: 20170224
  48. FORLAX [Suspect]
     Active Substance: POLYETHYLENE GLYCOL 4000
     Dosage: 10 MILLIGRAM, ONCE A DAY
     Route: 065
     Dates: start: 20160930, end: 20170224
  49. INSULIN [Suspect]
     Active Substance: INSULIN NOS
     Dosage: 21 MICROGRAM/SQ. METER, ONCE A DAY
     Route: 065
  50. LASIX [Suspect]
     Active Substance: FUROSEMIDE
     Indication: HYPERTENSION
     Dosage: 50 MILLIGRAM, UNK
     Route: 065
  51. LOXEN L P [Suspect]
     Active Substance: NICARDIPINE HYDROCHLORIDE
     Dosage: 1 DOSAGE FORM
     Route: 065
     Dates: start: 20170313, end: 20180405
  52. RAMIPRIL. [Suspect]
     Active Substance: RAMIPRIL
     Dosage: 2.5 MILLIGRAM, ONCE A DAY
     Route: 065
     Dates: start: 20170224
  53. TRAMADOL. [Suspect]
     Active Substance: TRAMADOL
     Dosage: 50 UNK
     Route: 065
     Dates: start: 20170306
  54. FOLINIC ACID [Suspect]
     Active Substance: LEUCOVORIN
     Indication: NORMOCHROMIC NORMOCYTIC ANAEMIA
     Dosage: 5 MILLIGRAM, ONCE A DAY
     Route: 064
     Dates: start: 20170224, end: 20170313
  55. LARGACTIL LEIRAS [Suspect]
     Active Substance: CHLORPROMAZINE
     Indication: BIPOLAR I DISORDER
     Dosage: 25 MILLIGRAM, ONCE A DAY
     Route: 064
     Dates: start: 20170720
  56. LOXEN L P [Suspect]
     Active Substance: NICARDIPINE HYDROCHLORIDE
     Indication: HYPERTENSION
     Dosage: 50 MILLIGRAM FORME LP X2/J, 100 UNK
     Route: 065
     Dates: start: 20170313, end: 20180405

REACTIONS (4)
  - Pregnancy [Unknown]
  - Exposure during pregnancy [Unknown]
  - Premature delivery [Not Recovered/Not Resolved]
  - Maternal exposure during pregnancy [Recovered/Resolved]

NARRATIVE: CASE EVENT DATE: 20170914
